FAERS Safety Report 12935664 (Version 2)
Quarter: 2016Q4

REPORT INFORMATION
  Report Type: Spontaneous
  Country: TR (occurrence: TR)
  Receive Date: 20161114
  Receipt Date: 20161130
  Transmission Date: 20170207
  Serious: Yes (Other)
  Sender: FDA-Public Use
  Company Number: TR-SUN PHARMACEUTICAL INDUSTRIES LTD-2016RR-127476

PATIENT
  Age: 6 Year
  Sex: Male
  Weight: 18 kg

DRUGS (2)
  1. KETAMINE [Suspect]
     Active Substance: KETAMINE
     Indication: SEDATION
     Dosage: 2 MG/KG, UNK
     Route: 042
  2. MIDAZOLAM [Suspect]
     Active Substance: MIDAZOLAM\MIDAZOLAM HYDROCHLORIDE
     Indication: SEDATION
     Dosage: 2 MG
     Route: 065

REACTIONS (1)
  - Intracranial pressure increased [Unknown]
